FAERS Safety Report 24306439 (Version 2)
Quarter: 2024Q3

REPORT INFORMATION
  Report Type: Spontaneous
  Country: PT (occurrence: PT)
  Receive Date: 20240911
  Receipt Date: 20240919
  Transmission Date: 20241017
  Serious: Yes (Hospitalization)
  Sender: MYLAN
  Company Number: PT-MYLANLABS-2024M1082216

PATIENT
  Age: 47 Year
  Sex: Female

DRUGS (5)
  1. FLUOROURACIL [Suspect]
     Active Substance: FLUOROURACIL
     Indication: Ductal adenocarcinoma of pancreas
     Dosage: 2400 MG/M2, INFUSION IMPLANTOFIX FOR 46 HOURS - 3528 MG IN 25 ML NACL 0.9% (PART OF FOLFIRINOX REGIM
     Route: 065
     Dates: start: 20221227
  2. IRINOTECAN [Suspect]
     Active Substance: IRINOTECAN
     Indication: Ductal adenocarcinoma of pancreas
     Dosage: 150 MG/M2, 220.5 MG IN 250 ML NACL 0.9% (PART OF FOLFIRINOX REGIMEN)
     Route: 065
     Dates: start: 20221227
  3. OXALIPLATIN [Suspect]
     Active Substance: OXALIPLATIN
     Indication: Ductal adenocarcinoma of pancreas
     Dosage: 85 MG/M2, 125 MG IN 250 ML OF 5% GLUCOSE (PART OF FOLFIRINOX REGIMEN)
     Route: 065
     Dates: start: 20221227
  4. LEUCOVORIN [Suspect]
     Active Substance: LEUCOVORIN\LEUCOVORIN CALCIUM
     Indication: Ductal adenocarcinoma of pancreas
     Dosage: UNK; PART OF FOLFIRINOX REGIMEN
     Route: 065
     Dates: start: 20221227
  5. LEVOLEUCOVORIN DISODIUM [Concomitant]
     Active Substance: LEVOLEUCOVORIN DISODIUM
     Indication: Product used for unknown indication
     Dosage: (295 MG IN 250 ML) {ONE DOSAGE (ONCE), FOR 5 HOURS}
     Route: 042

REACTIONS (3)
  - Cytotoxic lesions of corpus callosum [Recovered/Resolved]
  - Neurotoxicity [Recovered/Resolved]
  - Ophthalmoplegia [Recovered/Resolved]

NARRATIVE: CASE EVENT DATE: 20221201
